FAERS Safety Report 24734771 (Version 4)
Quarter: 2025Q2

REPORT INFORMATION
  Report Type: Spontaneous
  Country: US (occurrence: US)
  Receive Date: 20241215
  Receipt Date: 20250407
  Transmission Date: 20250716
  Serious: Yes (Hospitalization)
  Sender: SANOFI AVENTIS
  Company Number: US-SA-2024SA368995

PATIENT
  Age: 67 Year
  Sex: Female

DRUGS (2)
  1. DUPIXENT [Suspect]
     Active Substance: DUPILUMAB
     Indication: Asthma
     Dosage: 300 MG, QOW
     Route: 058
     Dates: start: 202310
  2. PREDNISONE [Suspect]
     Active Substance: PREDNISONE

REACTIONS (9)
  - Diabetic complication [Unknown]
  - Blood glucose abnormal [Unknown]
  - Malaise [Unknown]
  - Cough [Not Recovered/Not Resolved]
  - Hernia pain [Unknown]
  - Condition aggravated [Unknown]
  - Sleep disorder due to a general medical condition [Not Recovered/Not Resolved]
  - Headache [Unknown]
  - Asthma [Unknown]

NARRATIVE: CASE EVENT DATE: 20231001
